FAERS Safety Report 18431814 (Version 1)
Quarter: 2020Q4

REPORT INFORMATION
  Report Type: Spontaneous
  Country: US (occurrence: US)
  Receive Date: 20201027
  Receipt Date: 20201027
  Transmission Date: 20210114
  Serious: No
  Sender: FDA-Public Use
  Company Number: US-JNJFOC-A-NJ2020-208065

PATIENT
  Age: 75 Year
  Sex: Female
  Weight: 69.46 kg

DRUGS (2)
  1. OPSUMIT [Suspect]
     Active Substance: MACITENTAN
     Indication: PULMONARY ARTERIAL HYPERTENSION
     Dosage: 10 MG, QD
     Route: 048
     Dates: start: 20200723
  2. DILTIAZEM. [Concomitant]
     Active Substance: DILTIAZEM

REACTIONS (12)
  - Nausea [Unknown]
  - Sinusitis [Unknown]
  - Multiple allergies [Unknown]
  - Ocular hyperaemia [Unknown]
  - Vomiting [Unknown]
  - Lacrimation increased [Unknown]
  - Nasal congestion [Unknown]
  - Retching [Not Recovered/Not Resolved]
  - Sinus disorder [Not Recovered/Not Resolved]
  - Headache [Unknown]
  - Upper-airway cough syndrome [Unknown]
  - Hypersensitivity [Unknown]

NARRATIVE: CASE EVENT DATE: 20200802
